FAERS Safety Report 6276671-4 (Version None)
Quarter: 2009Q3

REPORT INFORMATION
  Report Type: 
  Country: None (occurrence: None)
  Receive Date: 20090722
  Receipt Date: 20080709
  Transmission Date: 20100115
  Serious: No
  Sender: FDA-Public Use
  Company Number: US-BRISTOL-MYERS SQUIBB COMPANY-14255061

PATIENT
  Age: 66 Year
  Sex: Female
  Weight: 134 kg

DRUGS (10)
  1. COUMADIN [Suspect]
     Indication: ATRIAL FIBRILLATION
     Dosage: 1 DF=7.5 MG 5 DAYS A WEEK AND 10 MG TWO DAYS A WEEK.
  2. SYNTHROID [Concomitant]
  3. TOPRAL [Concomitant]
  4. AMBIEN [Concomitant]
  5. ZOCOR [Concomitant]
  6. FIBERCON [Concomitant]
  7. CALCIUM D3 SANDOZ [Concomitant]
  8. LORTAB [Concomitant]
  9. GLIPIZIDE [Concomitant]
  10. HYDROCHLOROTHIAZIDE [Concomitant]

REACTIONS (2)
  - ACNE [None]
  - RASH [None]
